FAERS Safety Report 19557909 (Version 1)
Quarter: 2021Q3

REPORT INFORMATION
  Report Type: Report from Study
  Country: US (occurrence: US)
  Receive Date: 20210716
  Receipt Date: 20210716
  Transmission Date: 20211014
  Serious: Yes (Other)
  Sender: FDA-Public Use
  Company Number: US-PTC THERAPEUTICS, INC.-US-2021PTC000771

PATIENT
  Sex: Male
  Weight: 93.88 kg

DRUGS (2)
  1. EMFLAZA [Suspect]
     Active Substance: DEFLAZACORT
     Indication: DUCHENNE MUSCULAR DYSTROPHY
     Dosage: 48 MG (ONE 18 MG AND ONE 30 MG TABLETS), QD
     Route: 048
  2. EMFLAZA [Suspect]
     Active Substance: DEFLAZACORT
     Indication: BECKER^S MUSCULAR DYSTROPHY

REACTIONS (4)
  - Cataract [Unknown]
  - Incorrect dosage administered [Unknown]
  - Cushingoid [Unknown]
  - Nephrolithiasis [Unknown]
